FAERS Safety Report 12538138 (Version 2)
Quarter: 2016Q3

REPORT INFORMATION
  Report Type: Spontaneous
  Country: BR (occurrence: BR)
  Receive Date: 20160707
  Receipt Date: 20160916
  Transmission Date: 20161109
  Serious: Yes (Hospitalization, Other)
  Sender: FDA-Public Use
  Company Number: BR-ELI_LILLY_AND_COMPANY-BR201606009697

PATIENT
  Age: 55 Year
  Sex: Female
  Weight: 65 kg

DRUGS (11)
  1. CLORANA [Concomitant]
     Active Substance: HYDROCHLOROTHIAZIDE
     Dosage: UNK, UNKNOWN
     Route: 065
  2. IMIPRAMINA [Concomitant]
     Dosage: UNK, UNKNOWN
     Route: 065
  3. PARACETAMOL [Concomitant]
     Active Substance: ACETAMINOPHEN
     Indication: MIGRAINE
  4. NEOSALDINA                         /01575301/ [Concomitant]
     Indication: HEADACHE
     Dosage: UNK, UNKNOWN
     Route: 065
  5. DORIL [Concomitant]
     Indication: MIGRAINE
  6. CLONAZEPAM. [Concomitant]
     Active Substance: CLONAZEPAM
     Dosage: UNK, UNKNOWN
     Route: 065
  7. CLOMIPRAMINA                       /00116802/ [Concomitant]
     Dosage: UNK, UNKNOWN
     Route: 065
  8. PARACETAMOL [Concomitant]
     Active Substance: ACETAMINOPHEN
     Indication: HEADACHE
     Dosage: UNK, UNKNOWN
     Route: 065
  9. HUMULIN N [Suspect]
     Active Substance: INSULIN HUMAN
     Indication: TYPE 2 DIABETES MELLITUS
     Dosage: UNK, BID
     Route: 058
  10. DORIL [Concomitant]
     Indication: HEADACHE
     Dosage: UNK, UNKNOWN
     Route: 065
  11. NEOSALDINA                         /01575301/ [Concomitant]
     Indication: MIGRAINE

REACTIONS (13)
  - Pain in extremity [Unknown]
  - Skin necrosis [Unknown]
  - Hepatomegaly [Not Recovered/Not Resolved]
  - Haemorrhage [Unknown]
  - Liver disorder [Unknown]
  - Arthropathy [Unknown]
  - Injection site pain [Unknown]
  - Nail disorder [Unknown]
  - Drug dose omission [Unknown]
  - Contusion [Unknown]
  - Injury [Unknown]
  - Headache [Not Recovered/Not Resolved]
  - Abdominal distension [Unknown]

NARRATIVE: CASE EVENT DATE: 201507
